FAERS Safety Report 15001208 (Version 3)
Quarter: 2018Q3

REPORT INFORMATION
  Report Type: Spontaneous
  Country: DE (occurrence: DE)
  Receive Date: 20180612
  Receipt Date: 20180914
  Transmission Date: 20181010
  Serious: Yes (Death, Life-Threatening, Hospitalization, Other)
  Sender: FDA-Public Use
  Company Number: DE-PURDUE-GBR-2018-0056600

PATIENT
  Age: 98 Year
  Sex: Male

DRUGS (8)
  1. MAGNESIUM [Concomitant]
     Active Substance: MAGNESIUM
     Indication: PRODUCT USED FOR UNKNOWN INDICATION
     Dosage: UNK
     Route: 065
  2. PROPOFOL. [Concomitant]
     Active Substance: PROPOFOL
  3. OXYCODONE HYDROCHLORIDE. [Concomitant]
     Active Substance: OXYCODONE HYDROCHLORIDE
     Indication: PALLIATIVE CARE
     Dosage: 15 MG, DAILY (5 MG, 3X/DAY (16:00 H, 20:00 H AND 24:00 H)
  4. OXYCODONE HYDROCHLORIDE. [Concomitant]
     Active Substance: OXYCODONE HYDROCHLORIDE
     Dosage: 20 MG, DAILY (5 MG, 4X/DAY (04:00 H, 08:00 H, 13:00 H AND 19:00 H) )
     Route: 048
  5. KETAMINE [Concomitant]
     Active Substance: KETAMINE
  6. MORPHINE SULFATE. [Suspect]
     Active Substance: MORPHINE SULFATE
     Dosage: (DOSE 200 MG/50 ML)(INFUSION)
     Route: 040
  7. METAMIZOLE [Concomitant]
     Active Substance: METAMIZOLE
  8. MORPHINE SULFATE. [Suspect]
     Active Substance: MORPHINE SULFATE
     Indication: PALLIATIVE CARE
     Dosage: HIGH MORPHINE DOSES
     Route: 065

REACTIONS (3)
  - Toxicity to various agents [Fatal]
  - Cardiopulmonary failure [Fatal]
  - Overdose [Fatal]
